FAERS Safety Report 9908082 (Version 2)
Quarter: 2015Q4

REPORT INFORMATION
  Report Type: Report from Study
  Country: US (occurrence: US)
  Receive Date: 20140219
  Receipt Date: 20151110
  Transmission Date: 20160305
  Serious: Yes (Hospitalization)
  Sender: FDA-Public Use
  Company Number: US-ROCHE-1349810

PATIENT
  Age: 63 Year
  Sex: Female

DRUGS (4)
  1. NOVOLOG [Concomitant]
     Active Substance: INSULIN ASPART
  2. LUCENTIS [Suspect]
     Active Substance: RANIBIZUMAB
     Indication: DIABETIC RETINAL OEDEMA
     Route: 050
  3. LEVEMIR [Concomitant]
     Active Substance: INSULIN DETEMIR
  4. LUCENTIS [Suspect]
     Active Substance: RANIBIZUMAB
     Indication: DIABETES MELLITUS
     Dosage: BOTH EYES
     Route: 050

REACTIONS (7)
  - Gastric disorder [Unknown]
  - Fall [Unknown]
  - Hyperhidrosis [Unknown]
  - Blindness transient [Unknown]
  - Dizziness [Unknown]
  - Seizure [Recovered/Resolved]
  - Blood glucose decreased [Unknown]

NARRATIVE: CASE EVENT DATE: 201401
